FAERS Safety Report 18971452 (Version 1)
Quarter: 2021Q1

REPORT INFORMATION
  Report Type: Other
  Country: FR (occurrence: FR)
  Receive Date: 20210304
  Receipt Date: 20210304
  Transmission Date: 20210420
  Serious: Yes (Death, Other)
  Sender: FDA-Public Use
  Company Number: FR-CELLTRION INC.-2021FR002632

PATIENT

DRUGS (7)
  1. FOLIC ACID. [Concomitant]
     Active Substance: FOLIC ACID
     Dosage: 15 MG, QD
     Dates: start: 20200615, end: 20200916
  2. POLATUZUMAB VEDOTIN. [Suspect]
     Active Substance: POLATUZUMAB VEDOTIN
     Indication: DIFFUSE LARGE B-CELL LYMPHOMA
     Dosage: C1
     Route: 065
     Dates: start: 20200820, end: 20200820
  3. VALACICLOVIR [Concomitant]
     Active Substance: VALACYCLOVIR HYDROCHLORIDE
     Indication: ANTIVIRAL PROPHYLAXIS
     Dosage: 500 MG (FREQUENCY: 0.5 DAYS)
     Dates: start: 20200213, end: 20200916
  4. WELLVONE [Concomitant]
     Active Substance: ATOVAQUONE
     Dosage: 750 MG (FREQUENCY: 0.5 DAYS)
     Dates: start: 20200615, end: 20200916
  5. CHOLECALCIFEROL [Concomitant]
     Active Substance: CHOLECALCIFEROL
     Dosage: UNK, MONTHLY
     Dates: start: 20200615, end: 20200916
  6. RITUXIMAB (UNKNOWN) [Suspect]
     Active Substance: RITUXIMAB
     Indication: DIFFUSE LARGE B-CELL LYMPHOMA
     Dosage: C1
     Route: 041
     Dates: start: 20200820, end: 20200820
  7. BENDAMUSTINE [Suspect]
     Active Substance: BENDAMUSTINE
     Indication: DIFFUSE LARGE B-CELL LYMPHOMA
     Dosage: C1
     Route: 065
     Dates: start: 20200820, end: 20200820

REACTIONS (4)
  - Disease progression [Fatal]
  - Drug ineffective [Unknown]
  - Neutrophil count decreased [Unknown]
  - Infection [Unknown]

NARRATIVE: CASE EVENT DATE: 20200913
